FAERS Safety Report 4808220-9 (Version None)
Quarter: 2005Q4

REPORT INFORMATION
  Report Type: 
  Country: None (occurrence: None)
  Receive Date: 20051025
  Receipt Date: 20051019
  Transmission Date: 20060501
  Serious: Yes (Other)
  Sender: FDA-Public Use
  Company Number: GB-BOEHRINGER INGELHEIM PHARMACEUTICALS, INC.-2005-UK-02096UK

PATIENT
  Age: 64 Year
  Sex: Male

DRUGS (2)
  1. MOBIC [Suspect]
     Indication: ARTHRITIS
     Route: 048
     Dates: start: 20050909
  2. CODEINE PHOSPHATE AND ACETAMINOPHEN [Concomitant]
     Indication: ARTHRITIS
     Dosage: 8/500MG
     Route: 048
     Dates: start: 20050909

REACTIONS (1)
  - VISUAL ACUITY REDUCED [None]
